FAERS Safety Report 7570835-5 (Version None)
Quarter: 2011Q2

REPORT INFORMATION
  Report Type: 
  Country: None (occurrence: None)
  Receive Date: 20110624
  Receipt Date: 20110531
  Transmission Date: 20111010
  Serious: No
  Sender: FDA-Public Use
  Company Number: US-ALLERGAN-1107418US

PATIENT
  Age: 60 Year
  Sex: Female

DRUGS (1)
  1. LATISSE [Suspect]
     Indication: HYPOTRICHOSIS
     Dosage: 1 GTT, UNK
     Dates: start: 20110511, end: 20110530

REACTIONS (3)
  - MADAROSIS [None]
  - TRICHORRHEXIS [None]
  - INAPPROPRIATE SCHEDULE OF DRUG ADMINISTRATION [None]
